FAERS Safety Report 8057445-0 (Version None)
Quarter: 2012Q1

REPORT INFORMATION
  Report Type: 
  Country: None (occurrence: None)
  Receive Date: 20120119
  Receipt Date: 20120117
  Transmission Date: 20120608
  Serious: Yes (Disabling)
  Sender: FDA-Public Use
  Company Number: US-ROCHE-1015665

PATIENT
  Sex: Female

DRUGS (5)
  1. HERCEPTIN [Suspect]
     Indication: BREAST CANCER
     Route: 065
  2. CARBOPLATIN [Suspect]
     Indication: BREAST CANCER
  3. TAXOL [Suspect]
     Indication: BREAST CANCER
  4. DEXAMETHASONE TAB [Concomitant]
  5. ONDANSETRON [Concomitant]

REACTIONS (2)
  - VASCULITIS [None]
  - RETINAL ARTERY OCCLUSION [None]
